FAERS Safety Report 24387215 (Version 3)
Quarter: 2025Q1

REPORT INFORMATION
  Report Type: Report from Study
  Country: US (occurrence: US)
  Receive Date: 20241002
  Receipt Date: 20250331
  Transmission Date: 20250408
  Serious: Yes (Hospitalization)
  Sender: SANOFI AVENTIS
  Company Number: US-SA-SAC20240718000775

PATIENT
  Age: 11 Year
  Sex: Female

DRUGS (2)
  1. OLIPUDASE ALFA-RPCP [Suspect]
     Active Substance: OLIPUDASE ALFA-RPCP
     Indication: Niemann-Pick disease
     Dosage: 95.4 (UNITS NOT SPECIFIED), QOW
     Route: 042
     Dates: start: 202405
  2. OLIPUDASE ALFA-RPCP [Suspect]
     Active Substance: OLIPUDASE ALFA-RPCP
     Dosage: 120 (UNITS NOT PROVIDED), QOW
     Route: 042

REACTIONS (10)
  - Blood glucose increased [Not Recovered/Not Resolved]
  - Hyperhidrosis [Not Recovered/Not Resolved]
  - Heart rate increased [Not Recovered/Not Resolved]
  - Nervous system disorder [Not Recovered/Not Resolved]
  - Gait disturbance [Not Recovered/Not Resolved]
  - Body temperature increased [Not Recovered/Not Resolved]
  - Feeling hot [Not Recovered/Not Resolved]
  - Dizziness [Not Recovered/Not Resolved]
  - Pain in extremity [Not Recovered/Not Resolved]
  - Headache [Not Recovered/Not Resolved]

NARRATIVE: CASE EVENT DATE: 20240101
